FAERS Safety Report 8796213 (Version 2)
Quarter: 2012Q4

REPORT INFORMATION
  Report Type: 
  Country: SE (occurrence: SE)
  Receive Date: 20120919
  Receipt Date: 20121116
  Transmission Date: 20130627
  Serious: Yes (Hospitalization)
  Sender: FDA-Public Use
  Company Number: SE-BRISTOL-MYERS SQUIBB COMPANY-16945594

PATIENT
  Age: 71 Year
  Sex: Male

DRUGS (9)
  1. HYDREA [Suspect]
     Indication: POLYCYTHAEMIA VERA
     Dates: start: 20091120, end: 20120822
  2. OMEPRAZOLE [Concomitant]
  3. RAMIPRIL [Concomitant]
  4. AMLODIPINE [Concomitant]
  5. WARFARIN [Concomitant]
  6. ETALPHA [Concomitant]
  7. FURIX [Concomitant]
  8. EMCONCOR [Concomitant]
  9. ALFADIL [Concomitant]

REACTIONS (2)
  - Vasculitis [Not Recovered/Not Resolved]
  - Nephritis [Not Recovered/Not Resolved]
